FAERS Safety Report 13071342 (Version 2)
Quarter: 2017Q1

REPORT INFORMATION
  Report Type: Spontaneous
  Country: JP (occurrence: JP)
  Receive Date: 20161229
  Receipt Date: 20170203
  Transmission Date: 20170428
  Serious: Yes (Hospitalization, Other)
  Sender: FDA-Public Use
  Company Number: PHJP2016JP038036

PATIENT
  Age: 87 Year
  Sex: Female

DRUGS (1)
  1. GLIVEC [Suspect]
     Active Substance: IMATINIB MESYLATE
     Indication: GASTROINTESTINAL STROMAL TUMOUR
     Dosage: 300 MG, UNK
     Route: 048

REACTIONS (8)
  - Tumour haemorrhage [Unknown]
  - Anaemia [Recovered/Resolved]
  - Gastrointestinal stromal tumour [Unknown]
  - Tumour necrosis [Unknown]
  - Oedema [Recovered/Resolved]
  - Malignant neoplasm progression [Unknown]
  - Face oedema [Unknown]
  - Dysphagia [Unknown]
